FAERS Safety Report 12195468 (Version 2)
Quarter: 2017Q1

REPORT INFORMATION
  Report Type: Report from Study
  Country: US (occurrence: US)
  Receive Date: 20160321
  Receipt Date: 20170316
  Transmission Date: 20170428
  Serious: No
  Sender: FDA-Public Use
  Company Number: US-REGENERON PHARMACEUTICALS, INC.-2015-15070

PATIENT

DRUGS (9)
  1. ARCALYST [Suspect]
     Active Substance: RILONACEPT
     Dosage: 160 MG MILLIGRAM(S), UNK
     Route: 058
     Dates: start: 20151214, end: 20151214
  2. ARCALYST [Suspect]
     Active Substance: RILONACEPT
     Indication: FAMILIAL COLD AUTOINFLAMMATORY SYNDROME
     Dosage: 160 MG MILLIGRAM(S), UNK
     Route: 058
     Dates: start: 2007
  3. ARCALYST [Suspect]
     Active Substance: RILONACEPT
     Dosage: 160 MG MILLIGRAM(S), UNK
     Route: 058
     Dates: start: 20151130, end: 20151130
  4. NORVASC [Concomitant]
     Active Substance: AMLODIPINE BESYLATE
     Indication: PRODUCT USED FOR UNKNOWN INDICATION
     Dosage: 10 MG MILLIGRAM(S), QD
  5. ARCALYST [Suspect]
     Active Substance: RILONACEPT
     Dosage: 160 MG MILLIGRAM(S), UNK
     Route: 058
     Dates: start: 20151123, end: 20151123
  6. LISINOPRIL. [Concomitant]
     Active Substance: LISINOPRIL
     Indication: PRODUCT USED FOR UNKNOWN INDICATION
     Dosage: 10 MG MILLIGRAM(S), QD
  7. ARCALYST [Suspect]
     Active Substance: RILONACEPT
     Dosage: 160 MG MILLIGRAM(S), UNK
     Route: 058
     Dates: start: 20151207, end: 20151207
  8. ARCALYST [Suspect]
     Active Substance: RILONACEPT
     Dosage: 160 MG MILLIGRAM(S), UNK
     Route: 058
     Dates: start: 20151221, end: 20151221
  9. ADDERALL [Concomitant]
     Active Substance: AMPHETAMINE ASPARTATE\AMPHETAMINE SULFATE\DEXTROAMPHETAMINE SACCHARATE\DEXTROAMPHETAMINE SULFATE
     Indication: PRODUCT USED FOR UNKNOWN INDICATION
     Dosage: 20 MG MILLIGRAM(S), BID

REACTIONS (4)
  - Product quality issue [Recovered/Resolved]
  - Familial cold autoinflammatory syndrome [Recovered/Resolved]
  - Rash generalised [Recovered/Resolved]
  - Drug ineffective [Recovered/Resolved]

NARRATIVE: CASE EVENT DATE: 20151123
